FAERS Safety Report 11279068 (Version 1)
Quarter: 2015Q3

REPORT INFORMATION
  Report Type: Spontaneous
  Country: GB (occurrence: GB)
  Receive Date: 20150717
  Receipt Date: 20150717
  Transmission Date: 20151125
  Serious: Yes (Other)
  Sender: FDA-Public Use
  Company Number: GB-SUN PHARMACEUTICAL INDUSTRIES LTD-2015RR-100341

PATIENT

DRUGS (2)
  1. VENLAFAXINE [Suspect]
     Active Substance: VENLAFAXINE HYDROCHLORIDE
     Indication: DEPRESSION
     Dosage: 300MG DAILY, 150MG TAKEN AT MORNING AND NIGHT
     Route: 065
     Dates: end: 201408
  2. VENLAFAXINE [Suspect]
     Active Substance: VENLAFAXINE HYDROCHLORIDE
     Dosage: 75 MG, TID
     Route: 065
     Dates: start: 201408

REACTIONS (15)
  - Cerebral atrophy [Unknown]
  - Drug ineffective [Unknown]
  - Drug dose omission [Unknown]
  - Depressed mood [Unknown]
  - Asthenia [Unknown]
  - Memory impairment [Unknown]
  - Irritability [Unknown]
  - Depressive symptom [Unknown]
  - Memory impairment [Unknown]
  - Cognitive disorder [Unknown]
  - Lacunar infarction [Unknown]
  - Thinking abnormal [Unknown]
  - Aphasia [Unknown]
  - Feeling abnormal [Unknown]
  - Depression [Unknown]

NARRATIVE: CASE EVENT DATE: 2014
